FAERS Safety Report 4950518-8 (Version None)
Quarter: 2006Q1

REPORT INFORMATION
  Report Type: 
  Country: None (occurrence: None)
  Receive Date: 20060322
  Receipt Date: 20060308
  Transmission Date: 20060701
  Serious: Yes (Other)
  Sender: FDA-Public Use
  Company Number: FR-GLAXOSMITHKLINE-B0416395A

PATIENT
  Age: 55 Year
  Sex: Male

DRUGS (4)
  1. HEPSERA [Suspect]
     Indication: HEPATITIS B
     Dosage: 10MG PER DAY
     Route: 065
  2. LAMIVUDINE [Suspect]
     Indication: HEPATITIS B
     Route: 065
  3. PEGYLATED INTERFERON ALPHA 2A [Suspect]
     Indication: HEPATITIS B
     Dosage: 180MG WEEKLY
     Route: 065
  4. TENOFOVIR [Concomitant]
     Indication: HEPATITIS B

REACTIONS (13)
  - ANOREXIA [None]
  - ASCITES [None]
  - BACK PAIN [None]
  - DIARRHOEA [None]
  - DRUG RESISTANCE [None]
  - HEPATIC FAILURE [None]
  - HEPATITIS [None]
  - HEPATITIS B [None]
  - JAUNDICE [None]
  - OEDEMA [None]
  - RENAL FAILURE [None]
  - THROMBOCYTOPENIA [None]
  - WEIGHT DECREASED [None]
